FAERS Safety Report 5842000-0 (Version None)
Quarter: 2008Q3

REPORT INFORMATION
  Report Type: 
  Country: None (occurrence: None)
  Receive Date: 20080811
  Receipt Date: 20080811
  Transmission Date: 20090109
  Serious: No
  Sender: FDA-Public Use
  Company Number: None

PATIENT
  Age: 53 Year
  Sex: Female
  Weight: 90.7194 kg

DRUGS (1)
  1. OSMOPREP [Suspect]
     Indication: COLONOSCOPY
     Dosage: 4 TABS EVERY 30 MINUTES  5 X IN AM - 3 X PM
     Dates: start: 20080727, end: 20080727

REACTIONS (4)
  - DEHYDRATION [None]
  - NAUSEA [None]
  - VEIN DISORDER [None]
  - VOMITING [None]
